FAERS Safety Report 24028746 (Version 1)
Quarter: 2024Q2

REPORT INFORMATION
  Report Type: Spontaneous
  Country: US (occurrence: None)
  Receive Date: 20240627
  Receipt Date: 20240627
  Transmission Date: 20240716
  Serious: Yes (Hospitalization, Other)
  Sender: FDA-Public Use
  Company Number: None

PATIENT
  Age: 38 Year
  Sex: Male
  Weight: 72 kg

DRUGS (3)
  1. EXTRANEAL [Suspect]
     Active Substance: CALCIUM CHLORIDE\ICODEXTRIN\MAGNESIUM CHLORIDE\SODIUM CHLORIDE\SODIUM LACTATE
     Indication: End stage renal disease
     Dosage: OTHER FREQUENCY : EVERY TREATMENT?
     Route: 033
     Dates: start: 20240528, end: 20240626
  2. Liberty Cycler Peritoneal Dialysis Machine [Concomitant]
  3. Stay Safe Transfer Set [Concomitant]

REACTIONS (3)
  - Rash erythematous [None]
  - Rash [None]
  - Pustule [None]

NARRATIVE: CASE EVENT DATE: 20240624
